FAERS Safety Report 4285190-6 (Version None)
Quarter: 2004Q1

REPORT INFORMATION
  Report Type: 
  Country: None (occurrence: None)
  Receive Date: 20040202
  Receipt Date: 20040116
  Transmission Date: 20041129
  Serious: Yes (Hospitalization)
  Sender: FDA-Public Use
  Company Number: USA-2003-0009689

PATIENT
  Age: 69 Year
  Sex: Male

DRUGS (2)
  1. OXYCONTIN [Suspect]
     Indication: CANCER PAIN
     Dosage: 80 MG
  2. OXYCODONE HCL [Suspect]
     Indication: CANCER PAIN
     Dosage: MG

REACTIONS (3)
  - APHASIA [None]
  - CONFUSIONAL STATE [None]
  - MENTAL STATUS CHANGES [None]
